FAERS Safety Report 5312264-0 (Version None)
Quarter: 2007Q2

REPORT INFORMATION
  Report Type: 
  Country: None (occurrence: None)
  Receive Date: 20070430
  Receipt Date: 20061006
  Transmission Date: 20071010
  Serious: No
  Sender: FDA-Public Use
  Company Number: 2006UW19421

PATIENT
  Age: 45 Year
  Sex: Female
  Weight: 59 kg

DRUGS (7)
  1. NEXIUM [Suspect]
     Indication: GASTRITIS
     Route: 048
  2. NEXIUM [Suspect]
     Indication: GASTROOESOPHAGEAL REFLUX DISEASE
     Route: 048
  3. IRON [Concomitant]
  4. VITAMINS [Concomitant]
  5. REGLAN [Concomitant]
  6. LIPITOR [Concomitant]
  7. BUSPAR [Concomitant]

REACTIONS (5)
  - BLOOD DISORDER [None]
  - BLOOD GLUCOSE DECREASED [None]
  - DYSGEUSIA [None]
  - PHARYNGOLARYNGEAL PAIN [None]
  - THIRST [None]
